FAERS Safety Report 15210277 (Version 1)
Quarter: 2018Q3

REPORT INFORMATION
  Report Type: Spontaneous
  Country: US (occurrence: US)
  Receive Date: 20180629
  Receipt Date: 20180629
  Transmission Date: 20181010
  Serious: Yes (Hospitalization)
  Sender: FDA-Public Use
  Company Number: None

PATIENT
  Age: 59 Year
  Sex: Male

DRUGS (1)
  1. INLYTA [Suspect]
     Active Substance: AXITINIB
     Indication: NEOPLASM MALIGNANT
     Route: 048
     Dates: start: 20180601

REACTIONS (8)
  - Nausea [None]
  - Vomiting [None]
  - Pain in extremity [None]
  - Diarrhoea [None]
  - Arthralgia [None]
  - Drug ineffective [None]
  - Decreased appetite [None]
  - Dyspnoea [None]
